FAERS Safety Report 4326409-2 (Version None)
Quarter: 2004Q1

REPORT INFORMATION
  Report Type: 
  Country: None (occurrence: None)
  Receive Date: 20040325
  Receipt Date: 20031028
  Transmission Date: 20041129
  Serious: No
  Sender: FDA-Public Use
  Company Number: US053166

PATIENT
  Age: 66 Year
  Sex: Female

DRUGS (6)
  1. NEULASTA [Suspect]
     Indication: CHEMOTHERAPY
     Dosage: 6 MG, AFTER CHEMO, SC
     Route: 058
     Dates: start: 20031021
  2. DOCETAXEL [Concomitant]
  3. LEVOTHRYOXINE SODIUM [Concomitant]
  4. TELMISARTAN [Concomitant]
  5. AMLODIPINE BESYLATE [Concomitant]
  6. TERIPARATIDE [Concomitant]

REACTIONS (2)
  - ARTHRALGIA [None]
  - URTICARIA [None]
